FAERS Safety Report 22364949 (Version 2)
Quarter: 2023Q2

REPORT INFORMATION
  Report Type: Spontaneous
  Country: None (occurrence: GB)
  Receive Date: 20230525
  Receipt Date: 20230602
  Transmission Date: 20230721
  Serious: Yes (Other)
  Sender: FDA-Public Use
  Company Number: GB-Therakind Limited-2141976

PATIENT
  Age: 52 Year
  Sex: Female

DRUGS (2)
  1. METHOTREXATE [Suspect]
     Active Substance: METHOTREXATE
     Indication: Product used for unknown indication
  2. COSENTYX [Suspect]
     Active Substance: SECUKINUMAB

REACTIONS (16)
  - Eye disorder [Unknown]
  - Psoriatic arthropathy [Unknown]
  - Liver injury [Unknown]
  - Mental impairment [Not Recovered/Not Resolved]
  - Ear pain [Unknown]
  - Fibromyalgia [Unknown]
  - Product availability issue [Unknown]
  - Illness [Unknown]
  - Anxiety [Unknown]
  - Decreased appetite [Not Recovered/Not Resolved]
  - Headache [Unknown]
  - Depressed mood [Not Recovered/Not Resolved]
  - Tearfulness [Not Recovered/Not Resolved]
  - Memory impairment [Unknown]
  - Stress [Not Recovered/Not Resolved]
  - Malaise [Unknown]
